FAERS Safety Report 6279031-5 (Version None)
Quarter: 2009Q3

REPORT INFORMATION
  Report Type: 
  Country: None (occurrence: None)
  Receive Date: 20090723
  Receipt Date: 20090715
  Transmission Date: 20100115
  Serious: Yes (Other)
  Sender: FDA-Public Use
  Company Number: FR-JNJFOC-20090705678

PATIENT
  Age: 62 Year
  Sex: Female

DRUGS (2)
  1. REMICADE [Suspect]
     Dosage: DAY 14, 2ND INFUSION
     Route: 042
  2. REMICADE [Suspect]
     Indication: SJOGREN'S SYNDROME
     Dosage: DAY 0, 1ST INFUSION
     Route: 042

REACTIONS (4)
  - ATAXIA [None]
  - NEUROPATHY PERIPHERAL [None]
  - TREMOR [None]
  - VERTIGO [None]
